FAERS Safety Report 20751045 (Version 1)
Quarter: 2022Q2

REPORT INFORMATION
  Report Type: Spontaneous
  Country: CA (occurrence: CA)
  Receive Date: 20220426
  Receipt Date: 20220426
  Transmission Date: 20220721
  Serious: Yes (Other)
  Sender: FDA-Public Use
  Company Number: CA-TEVA-2022-CA-2029307

PATIENT
  Age: 27 Year
  Sex: Female

DRUGS (1)
  1. SULFAMETHOXAZOLE\TRIMETHOPRIM [Suspect]
     Active Substance: SULFAMETHOXAZOLE\TRIMETHOPRIM
     Indication: Product used for unknown indication
     Route: 065

REACTIONS (11)
  - Cholestasis [Unknown]
  - Drug hypersensitivity [Unknown]
  - Dyslipidaemia [Unknown]
  - Hepatitis cholestatic [Unknown]
  - Hepatitis fulminant [Unknown]
  - Hypercholesterolaemia [Unknown]
  - Hyperlipidaemia [Unknown]
  - Multi-organ disorder [Unknown]
  - Pseudohyponatraemia [Unknown]
  - Xanthoma [Unknown]
  - Xanthoma [Unknown]
